FAERS Safety Report 22155535 (Version 1)
Quarter: 2023Q1

REPORT INFORMATION
  Report Type: Report from Study
  Country: US (occurrence: None)
  Receive Date: 20230330
  Receipt Date: 20230330
  Transmission Date: 20230418
  Serious: Yes (Death, Hospitalization)
  Sender: FDA-Public Use
  Company Number: US-ROCHE-3319752

PATIENT
  Age: 46 Year
  Sex: Female

DRUGS (4)
  1. ATEZOLIZUMAB [Suspect]
     Active Substance: ATEZOLIZUMAB
     Indication: Endometrial cancer
     Dosage: ON 21/FEB/2023, SHE RECEIVED LAST DOSE OF 1680 MG OF ATEZOLIZUMAB PRIOR TO AE/SAE.
     Route: 041
     Dates: start: 20230221
  2. BEVACIZUMAB [Suspect]
     Active Substance: BEVACIZUMAB
     Indication: Endometrial cancer
     Dosage: ON 07/MAR/2023, SHE RECEIVED LAST DOSE OF OF 10 MG/KG BEVACIZUMAB PRIOR TO AE/SAE. ?EVERY 2 WEEKS OF
     Route: 042
     Dates: start: 20230221
  3. VASOPRESSIN [Concomitant]
     Active Substance: VASOPRESSIN
  4. FENTANYL [Concomitant]
     Active Substance: FENTANYL
     Dosage: 1 MGC/KG/HR

REACTIONS (1)
  - Cardiac arrest [Fatal]

NARRATIVE: CASE EVENT DATE: 20230308
